FAERS Safety Report 16017529 (Version 1)
Quarter: 2019Q1

REPORT INFORMATION
  Report Type: Spontaneous
  Country: US (occurrence: US)
  Receive Date: 20190201
  Receipt Date: 20190201
  Transmission Date: 20190418
  Serious: No
  Sender: FDA-Public Use
  Company Number: None

PATIENT
  Age: 65 Year
  Sex: Male

DRUGS (1)
  1. FLUPHENAZ DE INJ 25M/ML [Suspect]
     Active Substance: FLUPHENAZINE DECANOATE
     Dates: start: 20190101, end: 20190131

REACTIONS (1)
  - Tremor [None]

NARRATIVE: CASE EVENT DATE: 20190201
